FAERS Safety Report 15934859 (Version 4)
Quarter: 2019Q3

REPORT INFORMATION
  Report Type: Spontaneous
  Country: US (occurrence: US)
  Receive Date: 20190207
  Receipt Date: 20190701
  Transmission Date: 20191004
  Serious: Yes (Death, Hospitalization)
  Sender: FDA-Public Use
  Company Number: US-ACTELION-A-NJ2019-185557

PATIENT
  Sex: Female

DRUGS (14)
  1. METOLAZONE. [Concomitant]
     Active Substance: METOLAZONE
  2. ESTRACE [Concomitant]
     Active Substance: ESTRADIOL
     Dosage: 0.1 MG/GM CREAM
     Route: 067
  3. LEVOTHYROXINE. [Concomitant]
     Active Substance: LEVOTHYROXINE
     Dosage: 75 MCG
  4. LOVENOX [Concomitant]
     Active Substance: ENOXAPARIN SODIUM
  5. FUROSEMIDE. [Concomitant]
     Active Substance: FUROSEMIDE
     Dosage: 40 MG
  6. ADCIRCA [Concomitant]
     Active Substance: TADALAFIL
  7. OMEPRAZOLE. [Concomitant]
     Active Substance: OMEPRAZOLE
     Dosage: 20 MG
  8. DILTIAZEM. [Concomitant]
     Active Substance: DILTIAZEM
     Dosage: 30 MG
  9. TRACLEER [Suspect]
     Active Substance: BOSENTAN
     Indication: PULMONARY HYPERTENSION
     Dosage: 125 MG
     Route: 048
  10. ACETAMINOPHEN AND CODEINE [Concomitant]
     Active Substance: ACETAMINOPHEN\CODEINE PHOSPHATE
  11. PREDNISONE. [Concomitant]
     Active Substance: PREDNISONE
     Dosage: 5 MG
  12. PENTOXIFYLLIN [Concomitant]
     Active Substance: PENTOXIFYLLINE
     Dosage: 400 MG
  13. WARFARIN [Concomitant]
     Active Substance: WARFARIN
  14. SPIRONOLACTONE. [Concomitant]
     Active Substance: SPIRONOLACTONE
     Dosage: 50 MG

REACTIONS (9)
  - Pulmonary hypertension [Fatal]
  - Polymyositis [Fatal]
  - Hypoacusis [Unknown]
  - Cardiogenic shock [Fatal]
  - Acute respiratory failure [Fatal]
  - Scleroderma [Fatal]
  - Anaemia [Fatal]
  - Septic shock [Fatal]
  - Acute kidney injury [Fatal]
